FAERS Safety Report 17882308 (Version 3)
Quarter: 2020Q3

REPORT INFORMATION
  Report Type: Report from Study
  Country: US (occurrence: US)
  Receive Date: 20200610
  Receipt Date: 20200722
  Transmission Date: 20201103
  Serious: Yes (Life-Threatening, Hospitalization, Other)
  Sender: FDA-Public Use
  Company Number: US-GILEAD-2020-0471129

PATIENT
  Age: 49 Year
  Sex: Female

DRUGS (2)
  1. AMBRISENTAN [Suspect]
     Active Substance: AMBRISENTAN
     Indication: PULMONARY ARTERIAL HYPERTENSION
     Dosage: 10 MG
     Route: 065
     Dates: start: 20131024
  2. ADCIRCA [Concomitant]
     Active Substance: TADALAFIL

REACTIONS (12)
  - Hypotension [Unknown]
  - Fluid retention [Unknown]
  - Connective tissue disorder [Unknown]
  - Terminal state [Unknown]
  - Pulmonary embolism [Unknown]
  - Hepatic ischaemia [Recovered/Resolved]
  - Thrombosis [Unknown]
  - Intentional product use issue [Recovered/Resolved]
  - Acute respiratory failure [Unknown]
  - Cardiac failure [Unknown]
  - Peripheral swelling [Unknown]
  - Pulmonary hypertension [Unknown]

NARRATIVE: CASE EVENT DATE: 20200414
